FAERS Safety Report 25569238 (Version 1)
Quarter: 2025Q3

REPORT INFORMATION
  Report Type: Spontaneous
  Country: CA (occurrence: CA)
  Receive Date: 20250716
  Receipt Date: 20250716
  Transmission Date: 20251021
  Serious: Yes (Disabling)
  Sender: TEVA
  Company Number: CA-TEVA-VS-3351220

PATIENT
  Age: 50 Year
  Sex: Male
  Weight: 72.5 kg

DRUGS (1)
  1. MIRTAZAPINE [Suspect]
     Active Substance: MIRTAZAPINE
     Indication: Drug rehabilitation
     Route: 048

REACTIONS (4)
  - Erectile dysfunction [Unknown]
  - Drug dependence [Unknown]
  - Headache [Unknown]
  - Drug ineffective [Unknown]
